FAERS Safety Report 10687638 (Version 1)
Quarter: 2014Q4

REPORT INFORMATION
  Report Type: Spontaneous
  Country: US (occurrence: None)
  Receive Date: 20141231
  Receipt Date: 20141231
  Transmission Date: 20150529
  Serious: Yes (Hospitalization)
  Sender: FDA-Public Use
  Company Number: None

PATIENT
  Age: 66 Year
  Sex: Male
  Weight: 74.6 kg

DRUGS (2)
  1. POTASSIUM CHLORIDE. [Suspect]
     Active Substance: POTASSIUM CHLORIDE
     Indication: MINERAL SUPPLEMENTATION
     Dosage: 10 MEQ EVERY DAY PO
     Route: 048
     Dates: start: 20110922, end: 20141104
  2. LISINOPRIL. [Suspect]
     Active Substance: LISINOPRIL
     Indication: HYPERTENSION
     Route: 048
     Dates: start: 20130321, end: 20141104

REACTIONS (7)
  - Asthenia [None]
  - Pericardial effusion [None]
  - Acute kidney injury [None]
  - Hyperkalaemia [None]
  - Hyperhidrosis [None]
  - Myalgia [None]
  - Presyncope [None]

NARRATIVE: CASE EVENT DATE: 20141104
